FAERS Safety Report 11990183 (Version 1)
Quarter: 2016Q1

REPORT INFORMATION
  Report Type: Spontaneous
  Country: US (occurrence: US)
  Receive Date: 20160202
  Receipt Date: 20160202
  Transmission Date: 20160526
  Serious: Yes (Other)
  Sender: FDA-Public Use
  Company Number: US-PURDUE-USA-2016-0128748

PATIENT
  Age: 52 Year
  Sex: Female

DRUGS (4)
  1. MELOXICAM. [Concomitant]
     Active Substance: MELOXICAM
     Indication: PAIN
     Dosage: UNK, DAILY
     Route: 048
     Dates: start: 201601
  2. CLONAZEPAM. [Concomitant]
     Active Substance: CLONAZEPAM
     Indication: SLEEP DISORDER
     Dosage: UNK
     Route: 048
     Dates: start: 201601
  3. CLONAZEPAM. [Concomitant]
     Active Substance: CLONAZEPAM
     Indication: NERVOUSNESS
  4. BUTRANS [Suspect]
     Active Substance: BUPRENORPHINE
     Indication: PAIN
     Dosage: 7.5 MCG/HR, WEEKLY
     Route: 062
     Dates: start: 201601, end: 20160126

REACTIONS (12)
  - Nodule [Not Recovered/Not Resolved]
  - Peripheral swelling [Recovered/Resolved]
  - Dizziness [Unknown]
  - Asthenopia [Recovered/Resolved]
  - Nausea [Unknown]
  - Bedridden [Recovered/Resolved]
  - Eye swelling [Unknown]
  - Swelling [Unknown]
  - Vertigo [Unknown]
  - Inadequate analgesia [Recovered/Resolved]
  - Swelling face [Recovered/Resolved]
  - Fatigue [Unknown]

NARRATIVE: CASE EVENT DATE: 20160126
